FAERS Safety Report 16943751 (Version 2)
Quarter: 2020Q1

REPORT INFORMATION
  Report Type: Report from Study
  Country: JP (occurrence: JP)
  Receive Date: 20191022
  Receipt Date: 20200225
  Transmission Date: 20200409
  Serious: Yes (Other)
  Sender: FDA-Public Use
  Company Number: JP-CLINIGEN GROUP PLC/ CLINIGEN HEALTHCARE LTD-JP-CLGN-19-00598

PATIENT
  Age: 82 Year
  Sex: Female
  Weight: 43.3 kg

DRUGS (13)
  1. SAVENE [Suspect]
     Active Substance: DEXRAZOXANE
     Route: 041
     Dates: start: 20190904, end: 20190904
  2. DERMOVATE [Concomitant]
     Active Substance: CLOBETASOL
     Indication: INFUSION SITE EXTRAVASATION
     Route: 003
     Dates: start: 20190902, end: 20191001
  3. CALONAL [Concomitant]
     Active Substance: ACETAMINOPHEN
     Indication: INFUSION SITE EXTRAVASATION
     Route: 048
     Dates: start: 20190920, end: 20191015
  4. LACTEC [Concomitant]
     Active Substance: CALCIUM CHLORIDE ANHYDROUS\POTASSIUM CHLORIDE\SODIUM CHLORIDE\SODIUM LACTATE
     Indication: MEDICATION DILUTION
     Route: 041
     Dates: start: 20190902, end: 20190904
  5. RINDERON (BETAMETHASONE SODIUM PHOSPHATE) [Suspect]
     Active Substance: BETAMETHASONE SODIUM PHOSPHATE
     Indication: INFUSION SITE EXTRAVASATION
     Dates: start: 20190902, end: 20190905
  6. VICCLOX [Concomitant]
     Active Substance: ACYCLOVIR SODIUM
     Indication: PRODUCT USED FOR UNKNOWN INDICATION
     Route: 048
     Dates: start: 20190902
  7. LANSOPRAZOLE. [Concomitant]
     Active Substance: LANSOPRAZOLE
     Indication: PRODUCT USED FOR UNKNOWN INDICATION
     Route: 048
  8. DOXORUBICIN HYDROCHLORIDE. [Concomitant]
     Active Substance: DOXORUBICIN HYDROCHLORIDE
     Indication: LYMPHOMA
     Route: 042
     Dates: start: 20190902, end: 20190902
  9. PROTOPIC [Concomitant]
     Active Substance: TACROLIMUS
     Indication: INFUSION SITE EXTRAVASATION
     Route: 003
     Dates: start: 20191016, end: 20191029
  10. SAVENE [Suspect]
     Active Substance: DEXRAZOXANE
     Indication: INFUSION SITE EXTRAVASATION
     Route: 041
     Dates: start: 20190902, end: 20190903
  11. BAKTAR [Concomitant]
     Active Substance: SULFAMETHOXAZOLE\TRIMETHOPRIM
     Indication: PRODUCT USED FOR UNKNOWN INDICATION
     Route: 048
  12. MAGMITT [Concomitant]
     Active Substance: MAGNESIUM OXIDE
     Indication: PRODUCT USED FOR UNKNOWN INDICATION
     Route: 048
  13. KEFRAL [Concomitant]
     Active Substance: CEFACLOR
     Indication: INFUSION SITE EXTRAVASATION
     Route: 048
     Dates: start: 20190916, end: 20191001

REACTIONS (1)
  - Cellulitis [Unknown]

NARRATIVE: CASE EVENT DATE: 20190903
